FAERS Safety Report 14929407 (Version 1)
Quarter: 2018Q2

REPORT INFORMATION
  Report Type: Spontaneous
  Country: FR (occurrence: FR)
  Receive Date: 20180523
  Receipt Date: 20180523
  Transmission Date: 20180711
  Serious: Yes (Hospitalization)
  Sender: FDA-Public Use
  Company Number: FR-TEVA-2018-FR-894883

PATIENT
  Age: 48 Year
  Sex: Female

DRUGS (3)
  1. CARBAMAZEPINE. [Suspect]
     Active Substance: CARBAMAZEPINE
     Dosage: 15 TO 30 CP FOR THIS EPISODE
     Route: 048
     Dates: start: 2015
  2. RIVOTRIL [Suspect]
     Active Substance: CLONAZEPAM
     Dosage: 5 DROPS FOR THIS EPISODE
     Route: 048
     Dates: start: 2012
  3. CYMBALTA [Suspect]
     Active Substance: DULOXETINE HYDROCHLORIDE
     Dosage: 8 CP FOR THIS EPISODE
     Route: 048
     Dates: start: 2015

REACTIONS (1)
  - Drug abuse [Recovered/Resolved]

NARRATIVE: CASE EVENT DATE: 20170311
